FAERS Safety Report 21342046 (Version 1)
Quarter: 2022Q3

REPORT INFORMATION
  Report Type: Report from Study
  Country: US (occurrence: US)
  Receive Date: 20220916
  Receipt Date: 20220916
  Transmission Date: 20221027
  Serious: Yes (Other)
  Sender: FDA-Public Use
  Company Number: US-KOREA IPSEN Pharma-2022-25720

PATIENT
  Age: 55 Year
  Sex: Female

DRUGS (1)
  1. LANREOTIDE ACETATE [Suspect]
     Active Substance: LANREOTIDE ACETATE
     Indication: Carcinoid tumour
     Dosage: 120 MG/0.5 ML
     Route: 058
     Dates: start: 2019

REACTIONS (8)
  - Hepatic neoplasm [Not Recovered/Not Resolved]
  - Cerebrovascular accident [Recovered/Resolved]
  - Feeling abnormal [Recovering/Resolving]
  - Abdominal distension [Recovering/Resolving]
  - Palpitations [Recovered/Resolved]
  - Headache [Recovered/Resolved]
  - Gait disturbance [Recovered/Resolved]
  - Off label use [Unknown]

NARRATIVE: CASE EVENT DATE: 20220901
